FAERS Safety Report 4364594-7 (Version None)
Quarter: 2004Q2

REPORT INFORMATION
  Report Type: 
  Country: None (occurrence: None)
  Receive Date: 20040525
  Receipt Date: 20040506
  Transmission Date: 20050107
  Serious: Yes (Death, Hospitalization)
  Sender: FDA-Public Use
  Company Number: ATO-03-0534

PATIENT
  Age: 53 Year
  Sex: Female
  Weight: 85 kg

DRUGS (4)
  1. TRISENOX [Suspect]
     Indication: MYELODYSPLASTIC SYNDROME
     Dosage: 21 MG (0.25 MG/KG, QDX5DAYS, 2 WEEKS ON 2 WEEKS OFF), IVI
     Route: 042
     Dates: start: 20030908, end: 20030919
  2. ACYCLOVIR [Concomitant]
  3. SYNTHROID [Concomitant]
  4. PROTONIX [Concomitant]

REACTIONS (15)
  - BRONCHITIS [None]
  - CELLULITIS [None]
  - DIFFUSE ALVEOLAR DAMAGE [None]
  - FEBRILE NEUTROPENIA [None]
  - GINGIVAL OEDEMA [None]
  - LUNG INFILTRATION [None]
  - LUNG NEOPLASM [None]
  - LYMPHADENOPATHY [None]
  - LYMPHADENOPATHY MEDIASTINAL [None]
  - LYMPHOID TISSUE HYPERPLASIA [None]
  - PLEURAL EFFUSION [None]
  - RESPIRATORY FAILURE [None]
  - SPLENIC INFARCTION [None]
  - SPLENOMEGALY [None]
  - THYROID NEOPLASM [None]
